FAERS Safety Report 17443018 (Version 1)
Quarter: 2020Q1

REPORT INFORMATION
  Report Type: Spontaneous
  Country: US (occurrence: US)
  Receive Date: 20200206
  Receipt Date: 20200206
  Transmission Date: 20200409
  Serious: Yes (Hospitalization)
  Sender: FDA-Public Use
  Company Number: None

PATIENT
  Age: 88 Year
  Sex: Female

DRUGS (10)
  1. FLUTICASONE SPR [Concomitant]
  2. SIMVASTATIN. [Concomitant]
     Active Substance: SIMVASTATIN
  3. FUROSEMIDE TAB [Concomitant]
  4. SILDENAFIL TAB [Concomitant]
     Active Substance: SILDENAFIL
  5. ALBUTEROL AER HFA [Concomitant]
  6. AMBRISENTAN 10 MG TAB [Suspect]
     Active Substance: AMBRISENTAN
     Indication: IDIOPATHIC PULMONARY FIBROSIS
     Dosage: 10 MG TAB 1 TAB/DAILY ORAL
     Route: 048
     Dates: start: 20190821
  7. MEGESTROL AC TAB [Concomitant]
  8. SPIRONOLACT TAB [Concomitant]
  9. BENZONATATE CAP [Concomitant]
  10. MELOXICAM TAB [Concomitant]

REACTIONS (2)
  - Confusional state [None]
  - Affective disorder [None]

NARRATIVE: CASE EVENT DATE: 20200106
